FAERS Safety Report 6714334-9 (Version None)
Quarter: 2010Q2

REPORT INFORMATION
  Report Type: 
  Country: None (occurrence: None)
  Receive Date: 20100506
  Receipt Date: 20100420
  Transmission Date: 20101027
  Serious: Yes (Other)
  Sender: FDA-Public Use
  Company Number: US-ALLERGAN-1005256US

PATIENT
  Age: 86 Year
  Sex: Male

DRUGS (7)
  1. PREDNISOLONE ACETATE [Suspect]
     Indication: DRUG USE FOR UNKNOWN INDICATION
  2. BRIMONIDINE 0.1% SOL W/ PURITE [Suspect]
     Indication: INTRAOCULAR PRESSURE INCREASED
  3. TIMOLOL MALEATE [Suspect]
     Indication: INTRAOCULAR PRESSURE INCREASED
  4. HOMATROPINE [Concomitant]
     Indication: INTRAOCULAR PRESSURE INCREASED
  5. VIGAMOX [Concomitant]
  6. TRAVOPROST [Concomitant]
     Indication: INTRAOCULAR PRESSURE INCREASED
  7. ACETAZOLAMIDE [Concomitant]
     Indication: INTRAOCULAR PRESSURE INCREASED
     Dosage: 500 MG, UNK
     Route: 048

REACTIONS (4)
  - ENDOPHTHALMITIS [None]
  - EYE PAIN [None]
  - INTRAOCULAR PRESSURE INCREASED [None]
  - NAUSEA [None]
